FAERS Safety Report 5345615-1 (Version None)
Quarter: 2007Q2

REPORT INFORMATION
  Report Type: 
  Country: None (occurrence: None)
  Receive Date: 20070605
  Receipt Date: 20060706
  Transmission Date: 20071010
  Serious: No
  Sender: FDA-Public Use
  Company Number: US-ASTRAZENECA-2006UW13925

PATIENT
  Age: 62 Year
  Sex: Female
  Weight: 57 kg

DRUGS (2)
  1. PRILOSEC [Suspect]
     Indication: DYSPEPSIA
     Route: 048
  2. PREVACID [Suspect]
     Indication: DYSPEPSIA
     Route: 048
     Dates: start: 20051201, end: 20060201

REACTIONS (1)
  - HAEMOGLOBIN INCREASED [None]
